FAERS Safety Report 20921905 (Version 1)
Quarter: 2022Q2

REPORT INFORMATION
  Report Type: Spontaneous
  Country: GR (occurrence: GR)
  Receive Date: 20220607
  Receipt Date: 20220607
  Transmission Date: 20220721
  Serious: Yes (Other)
  Sender: FDA-Public Use
  Company Number: None

PATIENT
  Age: 70 Year
  Sex: Male

DRUGS (2)
  1. OXALIPLATIN [Suspect]
     Active Substance: OXALIPLATIN
     Dosage: 190 MG, EVERY 3 WEEKS
     Route: 042
  2. CAPECITABINE [Concomitant]
     Active Substance: CAPECITABINE
     Dosage: 1500 MG, 2X/DAY, FOR 14 DAYS Q3 WEEKS
     Route: 048

REACTIONS (2)
  - Cough [Recovered/Resolved]
  - Bronchospasm [Recovered/Resolved]
